FAERS Safety Report 15458958 (Version 1)
Quarter: 2018Q4

REPORT INFORMATION
  Report Type: Spontaneous
  Country: HR (occurrence: HR)
  Receive Date: 20181003
  Receipt Date: 20181003
  Transmission Date: 20190204
  Serious: Yes (Other)
  Sender: FDA-Public Use
  Company Number: PHHY2018HR110981

PATIENT
  Age: 49 Year
  Sex: Female

DRUGS (2)
  1. METHOTREXATE. [Suspect]
     Active Substance: METHOTREXATE
     Indication: GESTATIONAL TROPHOBLASTIC TUMOUR
     Dosage: 50 MG, QD, ON DAYS 1, 3, 5 AND 7
     Route: 030
  2. LEUCOVORIN CALCIUM. [Suspect]
     Active Substance: LEUCOVORIN CALCIUM
     Indication: GESTATIONAL TROPHOBLASTIC TUMOUR
     Dosage: 15 MG, Q24H, ON DAYS 2, 4, 6 AND 8
     Route: 030

REACTIONS (5)
  - Drug ineffective for unapproved indication [Unknown]
  - Vaginal haemorrhage [Unknown]
  - Hyperreactio luteinalis [Unknown]
  - Choriocarcinoma [Unknown]
  - Benign hydatidiform mole [Unknown]
